FAERS Safety Report 7806378-0 (Version None)
Quarter: 2011Q4

REPORT INFORMATION
  Report Type: 
  Country: None (occurrence: None)
  Receive Date: 20111011
  Receipt Date: 20111003
  Transmission Date: 20120403
  Serious: Yes (Hospitalization)
  Sender: FDA-Public Use
  Company Number: JP-JNJFOC-20111003188

PATIENT
  Age: 45 Year
  Sex: Female

DRUGS (6)
  1. TRAMADOL HYDROCHLORIDE/ACETAMINOPHEN [Suspect]
     Indication: PAIN
     Dosage: 1 PER 1 DAY
     Route: 048
     Dates: start: 20110928, end: 20110928
  2. LOXONIN [Concomitant]
     Dosage: 1 PER 1 DAY
     Route: 048
     Dates: start: 20110203, end: 20110929
  3. LORAZEPAM [Concomitant]
     Indication: PANIC DISORDER
     Dosage: 1 PER 1 DAY AS NECESSARY
     Route: 048
     Dates: start: 20110203
  4. MUCOSTA [Concomitant]
     Dosage: 1 PER 1 DAY
     Route: 048
     Dates: start: 20110203, end: 20110929
  5. METHYCOBAL [Concomitant]
     Dosage: 1 PER 1 DAY
     Route: 048
     Dates: start: 20110203, end: 20110920
  6. ZOLPIDEM [Concomitant]
     Indication: PANIC DISORDER
     Dosage: 1 PER 1 DAY
     Route: 048
     Dates: start: 20110203

REACTIONS (2)
  - CHEST DISCOMFORT [None]
  - MALAISE [None]
